FAERS Safety Report 8239415-2 (Version None)
Quarter: 2012Q1

REPORT INFORMATION
  Report Type: 
  Country: None (occurrence: None)
  Receive Date: 20120326
  Receipt Date: 20120322
  Transmission Date: 20120608
  Serious: Yes (Other)
  Sender: FDA-Public Use
  Company Number: 2012AP000492

PATIENT
  Age: 76 Year
  Sex: Male

DRUGS (12)
  1. FYBOGEL (PLANTAGO OVATA) [Concomitant]
  2. FRESUBIN [Concomitant]
  3. OMEPRAZOLE [Concomitant]
  4. MORPHINE SULFATE [Concomitant]
  5. PROSTAP (LEUPRORELIN ACETATE) [Concomitant]
  6. SERTRALINE HYDROCHLORIDE [Suspect]
     Indication: PRODUCT USED FOR UNKNOWN INDICATION
     Dates: start: 20120126
  7. ADCAL D3 (LEKOVIT CA) [Concomitant]
  8. RAMIPRIL [Concomitant]
  9. TAMSULOSIN HCL [Concomitant]
  10. THIAMINE HCL [Concomitant]
  11. ACETAMINOPHEN [Concomitant]
  12. SERTRALINE HYDROCHLORIDE [Concomitant]

REACTIONS (1)
  - HYPERKALAEMIA [None]
